FAERS Safety Report 8036621-7 (Version None)
Quarter: 2012Q1

REPORT INFORMATION
  Report Type: 
  Country: None (occurrence: None)
  Receive Date: 20120111
  Receipt Date: 20120109
  Transmission Date: 20120608
  Serious: Yes (Hospitalization)
  Sender: FDA-Public Use
  Company Number: PHHO2011SE16150

PATIENT
  Sex: Female

DRUGS (10)
  1. DIOVAN [Concomitant]
  2. LIPITOR [Concomitant]
  3. NORMORIX MITE [Concomitant]
  4. SIMVASTATIN [Concomitant]
  5. CELEBREX [Concomitant]
  6. TRAMADOL HCL [Concomitant]
  7. ACETAMINOPHEN [Concomitant]
  8. LETROZOLE [Suspect]
     Indication: BREAST CANCER
     Dosage: 2.5 MG, QD
     Route: 048
     Dates: start: 20091222
  9. LEVOTHYROXINE SODIUM [Concomitant]
  10. GLYBURIDE [Concomitant]

REACTIONS (1)
  - CARPAL TUNNEL SYNDROME [None]
